FAERS Safety Report 18192990 (Version 2)
Quarter: 2020Q3

REPORT INFORMATION
  Report Type: Spontaneous
  Country: US (occurrence: US)
  Receive Date: 20200825
  Receipt Date: 20200908
  Transmission Date: 20201103
  Serious: No
  Sender: FDA-Public Use
  Company Number: US-009507513-2008USA009883

PATIENT
  Sex: Female
  Weight: 62.59 kg

DRUGS (1)
  1. NEXPLANON [Suspect]
     Active Substance: ETONOGESTREL
     Dosage: 1 IMPLANT, LEFT ARM
     Route: 058
     Dates: start: 201711, end: 20200715

REACTIONS (4)
  - Implant site pain [Unknown]
  - Complication of device removal [Recovered/Resolved]
  - Adverse event [Unknown]
  - Complication associated with device [Recovered/Resolved]
